FAERS Safety Report 18220014 (Version 3)
Quarter: 2020Q4

REPORT INFORMATION
  Report Type: Spontaneous
  Country: SE (occurrence: SE)
  Receive Date: 20200902
  Receipt Date: 20201007
  Transmission Date: 20210113
  Serious: Yes (Disabling, Other)
  Sender: FDA-Public Use
  Company Number: SE-REGENERON PHARMACEUTICALS, INC.-2020-71986

PATIENT

DRUGS (2)
  1. EYLEA [Suspect]
     Active Substance: AFLIBERCEPT
     Dosage: INJECTION PERFORMED PRIOR TO EVENT
     Route: 031
     Dates: start: 20200806, end: 20200806
  2. EYLEA [Suspect]
     Active Substance: AFLIBERCEPT
     Indication: NEOVASCULAR AGE-RELATED MACULAR DEGENERATION
     Dosage: 7 WEEKS, TREAT AND EXTEND, OD , TOTAL OF 18 DOSES OF EYLEA
     Route: 031

REACTIONS (2)
  - Endophthalmitis [Recovered/Resolved with Sequelae]
  - Blindness [Unknown]

NARRATIVE: CASE EVENT DATE: 20200809
